FAERS Safety Report 10426662 (Version 3)
Quarter: 2017Q3

REPORT INFORMATION
  Report Type: Report from Study
  Country: DE (occurrence: DE)
  Receive Date: 20140903
  Receipt Date: 20170731
  Transmission Date: 20171127
  Serious: Yes (Other)
  Sender: FDA-Public Use
  Company Number: DE-ROCHE-792120

PATIENT
  Age: 60 Year
  Sex: Female
  Weight: 92.3 kg

DRUGS (13)
  1. TRASTUZUMAB EMTANSINE [Suspect]
     Active Substance: ADO-TRASTUZUMAB EMTANSINE
     Indication: HER-2 POSITIVE BREAST CANCER
     Dosage: DATE OF LAST DOSE PRIOR TO SAE: 21 JULY 2011
     Route: 042
  2. L-THYROXIN [Concomitant]
     Active Substance: LEVOTHYROXINE SODIUM
     Indication: HYPOTHYROIDISM
     Route: 065
     Dates: end: 201112
  3. RANITIDIN [Concomitant]
     Active Substance: RANITIDINE HYDROCHLORIDE
     Indication: PREMEDICATION
     Route: 065
     Dates: start: 20100910, end: 20111214
  4. TAVEGIL [Concomitant]
     Active Substance: CLEMASTINE FUMARATE
     Indication: PREMEDICATION
     Route: 065
     Dates: start: 20100910, end: 20111214
  5. SAROTEN [Concomitant]
     Active Substance: AMITRIPTYLINE
     Indication: DEPRESSION
     Route: 065
     Dates: end: 201112
  6. RAMIPRIL. [Concomitant]
     Active Substance: RAMIPRIL
     Indication: HYPERTENSION
     Route: 065
     Dates: end: 201112
  7. NOVALGIN (AUSTRIA) [Concomitant]
     Indication: PAIN
     Route: 065
     Dates: start: 20101022, end: 201112
  8. TRASTUZUMAB EMTANSINE [Suspect]
     Active Substance: ADO-TRASTUZUMAB EMTANSINE
     Dosage: DOSE DECREASED
     Route: 042
  9. SEVREDOL [Concomitant]
     Active Substance: MORPHINE
     Indication: PAIN
     Route: 065
     Dates: start: 20101023, end: 201112
  10. CYMBALTA [Concomitant]
     Active Substance: DULOXETINE HYDROCHLORIDE
     Indication: DEPRESSION
     Route: 065
     Dates: end: 201112
  11. PERTUZUMAB. [Suspect]
     Active Substance: PERTUZUMAB
     Dosage: DATE OF LAST DOSE PRIOR TO SAE: 21 JULY 2011. MAINTENANCE DOSE AS PER PROTOCOL.
     Route: 042
  12. PERTUZUMAB. [Suspect]
     Active Substance: PERTUZUMAB
     Indication: HER-2 POSITIVE BREAST CANCER
     Dosage: DATE OF LAST DOSE PRIOR TO SAE: 21 JULY 2011. LOADING DOSE AS PER PROTOCOL.
     Route: 042
     Dates: start: 20100910, end: 20100910
  13. DUROGESIC [Concomitant]
     Active Substance: FENTANYL
     Indication: PAIN
     Route: 065
     Dates: end: 201112

REACTIONS (1)
  - Confusional state [Recovered/Resolved]

NARRATIVE: CASE EVENT DATE: 20110722
